FAERS Safety Report 21949802 (Version 1)
Quarter: 2023Q1

REPORT INFORMATION
  Report Type: Spontaneous
  Country: US (occurrence: US)
  Receive Date: 20230203
  Receipt Date: 20230203
  Transmission Date: 20230417
  Serious: No
  Sender: FDA-Public Use
  Company Number: US-ABBVIE-4255909

PATIENT
  Sex: Female

DRUGS (13)
  1. RINVOQ [Suspect]
     Active Substance: UPADACITINIB
     Indication: Dermatitis atopic
     Route: 048
     Dates: start: 20221204
  2. HYDROXYCHLOROQUINE SULFATE [Concomitant]
     Active Substance: HYDROXYCHLOROQUINE SULFATE
     Indication: Product used for unknown indication
  3. SYNTHROID [Concomitant]
     Active Substance: LEVOTHYROXINE SODIUM
     Indication: Product used for unknown indication
  4. Prempro (Estrogens conjugated;Medroxyprogesterone acetate) [Concomitant]
     Indication: Product used for unknown indication
  5. DUPIXENT [Concomitant]
     Active Substance: DUPILUMAB
     Indication: Product used for unknown indication
  6. Methocarbamol (Methocarbamol) [Concomitant]
     Indication: Product used for unknown indication
  7. DOXYCYCLINE [Concomitant]
     Active Substance: DOXYCYCLINE
     Indication: Product used for unknown indication
  8. GABAPENTIN [Concomitant]
     Active Substance: GABAPENTIN
     Indication: Product used for unknown indication
  9. ESOMEPRAZOLE MAGNESIUM [Concomitant]
     Active Substance: ESOMEPRAZOLE MAGNESIUM
     Indication: Product used for unknown indication
  10. Hydroxyzine (Hydroxyzine hydrochloride) [Concomitant]
     Indication: Product used for unknown indication
  11. Amitriptyline HCL (Amitriptyline hydrochloride) [Concomitant]
     Indication: Product used for unknown indication
  12. MYRBETRIQ [Concomitant]
     Active Substance: MIRABEGRON
     Indication: Product used for unknown indication
  13. XANAX [Concomitant]
     Active Substance: ALPRAZOLAM
     Indication: Product used for unknown indication

REACTIONS (15)
  - Skin ulcer [Not Recovered/Not Resolved]
  - Ear pruritus [Not Recovered/Not Resolved]
  - Hand deformity [Not Recovered/Not Resolved]
  - Arthralgia [Not Recovered/Not Resolved]
  - Insomnia [Not Recovered/Not Resolved]
  - Restlessness [Not Recovered/Not Resolved]
  - Spondylitis [Not Recovered/Not Resolved]
  - Cystitis interstitial [Not Recovered/Not Resolved]
  - Erythema [Not Recovered/Not Resolved]
  - Nasopharyngitis [Recovered/Resolved]
  - Disturbance in attention [Not Recovered/Not Resolved]
  - Ear haemorrhage [Not Recovered/Not Resolved]
  - Nail disorder [Not Recovered/Not Resolved]
  - Foot deformity [Not Recovered/Not Resolved]
  - Feeling hot [Not Recovered/Not Resolved]
